FAERS Safety Report 9295672 (Version 2)
Quarter: 2013Q4

REPORT INFORMATION
  Report Type: Report from Study
  Country: JP (occurrence: JP)
  Receive Date: 20130517
  Receipt Date: 20131031
  Transmission Date: 20140711
  Serious: Yes (Death)
  Sender: FDA-Public Use
  Company Number: JP-PFIZER INC-2013149278

PATIENT
  Age: 77 Year
  Sex: Male
  Weight: 55 kg

DRUGS (15)
  1. NOVASTAN [Suspect]
     Indication: HEPARIN-INDUCED THROMBOCYTOPENIA
     Dosage: 0.7 UG/KG/MIN
     Route: 041
     Dates: start: 20130221, end: 20130222
  2. NOVASTAN [Suspect]
     Dosage: 0.7MCG/KG/MIN
     Route: 041
     Dates: start: 20130222, end: 20130227
  3. NAFATAT [Concomitant]
     Indication: HAEMODIALYSIS
     Dosage: 150 MG, UNK
     Route: 042
     Dates: start: 20130221, end: 20130223
  4. YUNASUPIN [Concomitant]
     Indication: PROPHYLAXIS
     Dosage: 1.5 G, UNK
     Route: 042
     Dates: start: 20130222, end: 20130222
  5. WARFARIN [Concomitant]
     Dosage: 3 MG, UNK
     Route: 048
     Dates: start: 20130223, end: 20130226
  6. WARFARIN [Concomitant]
     Dosage: 2 MG, UNK
     Route: 048
     Dates: start: 20130227, end: 20130228
  7. WARFARIN [Concomitant]
     Dosage: 1.5 MG, UNK
     Route: 048
     Dates: start: 20130303
  8. LANSOPRAZOLE [Concomitant]
     Indication: PROPHYLAXIS
     Dosage: 15 MG, UNK
     Route: 048
     Dates: start: 20130223
  9. PROTECADIN [Concomitant]
     Indication: PROPHYLAXIS
     Dosage: 10 MG, UNK
     Route: 048
     Dates: end: 20130221
  10. AMLODIPINE [Concomitant]
     Dosage: 5 MG, UNK
     Route: 048
  11. HEPARIN SODIUM [Concomitant]
     Dosage: UNK
     Route: 051
  12. ARGATROBAN [Concomitant]
     Indication: HEPARIN-INDUCED THROMBOCYTOPENIA
     Dosage: 40 MG, UNK
     Route: 042
     Dates: start: 20130216, end: 20130220
  13. BAYASPIRIN [Concomitant]
     Dosage: 100 MG, UNK
     Route: 048
     Dates: end: 20130219
  14. NESP [Concomitant]
     Dosage: 60 UG, UNK
     Route: 042
     Dates: end: 20130219
  15. FESIN [Concomitant]
     Dosage: 40 MG, UNK
     Route: 042
     Dates: end: 20130219

REACTIONS (1)
  - Duodenal perforation [Fatal]
